FAERS Safety Report 5987763-9 (Version None)
Quarter: 2008Q4

REPORT INFORMATION
  Report Type: 
  Country: None (occurrence: None)
  Receive Date: 20081209
  Receipt Date: 20080103
  Transmission Date: 20090506
  Serious: No
  Sender: FDA-Public Use
  Company Number: US-BAYER-200810413NA

PATIENT
  Age: 51 Year
  Sex: Female
  Weight: 55 kg

DRUGS (1)
  1. CLIMARA PRO [Suspect]
     Indication: MENOPAUSAL SYMPTOMS
     Route: 062
     Dates: start: 20070501, end: 20070801

REACTIONS (7)
  - ABNORMAL WITHDRAWAL BLEEDING [None]
  - AMENORRHOEA [None]
  - FUNGAL INFECTION [None]
  - HOT FLUSH [None]
  - INSOMNIA [None]
  - LOSS OF LIBIDO [None]
  - POSTMENOPAUSAL HAEMORRHAGE [None]
